FAERS Safety Report 6207741-4 (Version None)
Quarter: 2009Q2

REPORT INFORMATION
  Report Type: 
  Country: None (occurrence: None)
  Receive Date: 20090526
  Receipt Date: 20090515
  Transmission Date: 20091009
  Serious: Yes (Hospitalization)
  Sender: FDA-Public Use
  Company Number: 2009SP010443

PATIENT
  Age: 80 Year
  Sex: Male

DRUGS (7)
  1. TEMOZOLOMIDE [Suspect]
     Indication: SKIN CANCER
     Dosage: 300 MG;QD;PO
     Route: 048
     Dates: start: 20090427, end: 20090513
  2. BEVACIZUMAB (BEVACIZUMAB) [Suspect]
     Indication: SKIN CANCER
     Dosage: 915 MG;QD;IV
     Route: 042
     Dates: start: 20090427, end: 20090513
  3. BELOK ZOK [Concomitant]
  4. IRBESARTAN [Concomitant]
  5. NORVASC [Concomitant]
  6. ZOLPIDEM TARTRATE [Concomitant]
  7. SORTIS [Concomitant]

REACTIONS (2)
  - DEMENTIA [None]
  - DISORIENTATION [None]
